FAERS Safety Report 4775507-8 (Version None)
Quarter: 2005Q3

REPORT INFORMATION
  Report Type: 
  Country: None (occurrence: None)
  Receive Date: 20050922
  Receipt Date: 20050912
  Transmission Date: 20060218
  Serious: Yes (Hospitalization)
  Sender: FDA-Public Use
  Company Number: FR-JNJFOC-20050902662

PATIENT
  Sex: Male

DRUGS (4)
  1. REMICADE [Suspect]
     Dosage: 24TH INFUSION
     Route: 042
  2. REMICADE [Suspect]
     Indication: RHEUMATOID ARTHRITIS
     Dosage: 23 INFUSIONS.
     Route: 042
  3. METHOTREXATE [Concomitant]
     Route: 065
  4. HYDROCORTISONE [Concomitant]
     Route: 065

REACTIONS (1)
  - LEGIONELLA INFECTION [None]
